FAERS Safety Report 20157413 (Version 1)
Quarter: 2021Q4

REPORT INFORMATION
  Report Type: Spontaneous
  Country: US (occurrence: US)
  Receive Date: 20211207
  Receipt Date: 20211207
  Transmission Date: 20220303
  Serious: Yes (Hospitalization, Other)
  Sender: FDA-Public Use
  Company Number: US-009507513-2112USA000990

PATIENT
  Age: 66 Year
  Sex: Female

DRUGS (1)
  1. KEYTRUDA [Suspect]
     Active Substance: PEMBROLIZUMAB
     Indication: Non-small cell lung cancer stage IV
     Dosage: RECEIVED 15 CYCLES OVER THE PREVIOUS 16 MONTHS - LAST RECEIVED 4 WEEKS PRIOR TO ADMISSION
     Route: 042

REACTIONS (1)
  - Autoimmune hepatitis [Unknown]
